FAERS Safety Report 7618757-5 (Version None)
Quarter: 2011Q3

REPORT INFORMATION
  Report Type: 
  Country: None (occurrence: None)
  Receive Date: 20110718
  Receipt Date: 20110708
  Transmission Date: 20111222
  Serious: Yes (Death)
  Sender: FDA-Public Use
  Company Number: FR-BAXTER-2011BH023024

PATIENT

DRUGS (6)
  1. CYCLOPHOSPHAMIDE [Suspect]
     Indication: BONE MARROW TRANSPLANT
     Route: 065
  2. BUSULFAN [Suspect]
     Indication: BONE MARROW TRANSPLANT
     Route: 065
  3. METHOTREXATE [Suspect]
     Indication: BONE MARROW TRANSPLANT
     Route: 065
  4. CYCLOSPORINE [Concomitant]
     Indication: BONE MARROW TRANSPLANT
     Route: 065
  5. CYCLOPHOSPHAMIDE [Suspect]
     Indication: OFF LABEL USE
     Route: 065
  6. ANTI-THYMOCYTE GLOBULIN NOS [Concomitant]
     Indication: BONE MARROW TRANSPLANT
     Route: 065

REACTIONS (1)
  - DEATH [None]
